FAERS Safety Report 19404012 (Version 1)
Quarter: 2021Q2

REPORT INFORMATION
  Report Type: Spontaneous
  Country: US (occurrence: US)
  Receive Date: 20210610
  Receipt Date: 20210610
  Transmission Date: 20210717
  Serious: No
  Sender: FDA-Public Use
  Company Number: None

PATIENT
  Sex: Female
  Weight: 61.23 kg

DRUGS (1)
  1. TOPIRAMATE 15MG CAPS [Suspect]
     Active Substance: TOPIRAMATE
     Indication: BIPOLAR DISORDER
     Route: 048
     Dates: start: 2010

REACTIONS (5)
  - Coordination abnormal [None]
  - Impaired driving ability [None]
  - Tremor [None]
  - Hypoaesthesia [None]
  - Product substitution issue [None]

NARRATIVE: CASE EVENT DATE: 20201003
